FAERS Safety Report 10341895 (Version 1)
Quarter: 2014Q3

REPORT INFORMATION
  Report Type: Spontaneous
  Country: US (occurrence: US)
  Receive Date: 20140725
  Receipt Date: 20140725
  Transmission Date: 20150326
  Serious: Yes (Other)
  Sender: FDA-Public Use
  Company Number: US-ASTELLAS-2014US008613

PATIENT
  Sex: Female

DRUGS (2)
  1. PROGRAF [Suspect]
     Active Substance: TACROLIMUS\TACROLIMUS ANHYDROUS
     Indication: IMMUNOSUPPRESSION
     Dosage: UNK UNK, UNKNOWN FREQ.
     Route: 048
     Dates: start: 20090405
  2. PREDNISONE. [Suspect]
     Active Substance: PREDNISONE
     Indication: PRODUCT USED FOR UNKNOWN INDICATION
     Route: 065
     Dates: start: 2009, end: 2012

REACTIONS (9)
  - Weight increased [Unknown]
  - Arthralgia [Unknown]
  - Skin fissures [Unknown]
  - Dyspepsia [Unknown]
  - Inflammation [Unknown]
  - Bone atrophy [Unknown]
  - Hip arthroplasty [Unknown]
  - Nerve injury [Unknown]
  - Swelling [Unknown]
